FAERS Safety Report 8724624 (Version 2)
Quarter: 2012Q4

REPORT INFORMATION
  Report Type: 
  Country: SE (occurrence: SE)
  Receive Date: 20120815
  Receipt Date: 20120829
  Transmission Date: 20130627
  Serious: Yes (Other)
  Sender: FDA-Public Use
  Company Number: SE-ASTRAZENECA-2012SE55502

PATIENT
  Age: 77 Year
  Sex: Male
  Weight: 77 kg

DRUGS (5)
  1. PLENDIL [Suspect]
     Indication: HYPERTENSION
     Route: 048
     Dates: start: 2004
  2. PLENDIL [Suspect]
     Indication: HYPERTENSION
     Dosage: GENERIC
     Route: 048
  3. PLENDIL [Suspect]
     Indication: HYPERTENSION
     Route: 048
  4. AVASTIN [Concomitant]
     Indication: COLON NEOPLASM
  5. SELOKEN [Concomitant]
     Indication: CARDIOVASCULAR EVENT PROPHYLAXIS
     Route: 048
     Dates: start: 2011

REACTIONS (6)
  - Colon cancer [Unknown]
  - Thrombosis [Unknown]
  - Atrial fibrillation [Unknown]
  - Generalised erythema [Unknown]
  - Erythema [Unknown]
  - Drug ineffective [Unknown]
